FAERS Safety Report 17936429 (Version 1)
Quarter: 2020Q2

REPORT INFORMATION
  Report Type: Spontaneous
  Country: US (occurrence: US)
  Receive Date: 20200624
  Receipt Date: 20200624
  Transmission Date: 20200714
  Serious: No
  Sender: FDA-Public Use
  Company Number: US-ASTRAZENECA-2020SE79128

PATIENT
  Age: 22552 Day
  Sex: Female
  Weight: 34 kg

DRUGS (1)
  1. SYMBICORT [Suspect]
     Active Substance: BUDESONIDE\FORMOTEROL FUMARATE DIHYDRATE
     Indication: CHRONIC OBSTRUCTIVE PULMONARY DISEASE
     Dosage: 160/4.5MCG, TWO PUFFS TWICE A DAY FOR SEVERAL YEARS
     Route: 055

REACTIONS (7)
  - Memory impairment [Recovered/Resolved]
  - Muscle spasms [Recovered/Resolved]
  - Device issue [Unknown]
  - Headache [Recovered/Resolved]
  - Diarrhoea [Recovered/Resolved]
  - Myalgia [Recovered/Resolved]
  - Dyspnoea [Recovered/Resolved]

NARRATIVE: CASE EVENT DATE: 20200615
